FAERS Safety Report 8301100-6 (Version None)
Quarter: 2012Q2

REPORT INFORMATION
  Report Type: 
  Country: None (occurrence: None)
  Receive Date: 20120420
  Receipt Date: 20120410
  Transmission Date: 20120825
  Serious: Yes (Hospitalization)
  Sender: FDA-Public Use
  Company Number: US-JNJFOC-20120405117

PATIENT
  Sex: Female
  Weight: 33.3 kg

DRUGS (4)
  1. PERIACTIN [Concomitant]
  2. REMICADE [Suspect]
     Indication: CROHN'S DISEASE
     Route: 042
     Dates: start: 20110724
  3. METHOTREXATE [Concomitant]
  4. BUDESONIDE [Concomitant]

REACTIONS (1)
  - CROHN'S DISEASE [None]
